FAERS Safety Report 10386064 (Version 1)
Quarter: 2014Q1

REPORT INFORMATION
  Report Type: Spontaneous
  Country: US (occurrence: None)
  Receive Date: 20140306
  Receipt Date: 20140306
  Transmission Date: 20141002
  Serious: Yes (Hospitalization)
  Sender: FDA-Public Use
  Company Number: 163-21880-13062797

PATIENT
  Age: 74 Year
  Sex: Female

DRUGS (3)
  1. REVLIMD (LENALIDOMIDE) (5 MILLIGRAM, CAPSULES) [Suspect]
     Indication: PLASMA CELL MYELOMA
     Dosage: 5MG, 14 IN 21 D, PO
     Route: 048
     Dates: start: 20110325
  2. VELCADE (BORTEZOMIB) [Concomitant]
  3. ZOMETA (ZOLEDRONIC ACID) [Concomitant]

REACTIONS (1)
  - Dyspnoea [None]
